FAERS Safety Report 7893739-7 (Version None)
Quarter: 2011Q4

REPORT INFORMATION
  Report Type: 
  Country: None (occurrence: None)
  Receive Date: 20111104
  Receipt Date: 20111021
  Transmission Date: 20120403
  Serious: Yes (Death)
  Sender: FDA-Public Use
  Company Number: PHHY2011NL93746

PATIENT
  Sex: Male
  Weight: 85 kg

DRUGS (1)
  1. PREDNISONE [Suspect]
     Indication: DYSPNOEA
     Dosage: UNK
     Route: 048
     Dates: start: 19900101, end: 19900101

REACTIONS (3)
  - EMPHYSEMA [None]
  - MALAISE [None]
  - PNEUMONIA [None]
